FAERS Safety Report 20170137 (Version 3)
Quarter: 2023Q1

REPORT INFORMATION
  Report Type: Report from Study
  Country: JP (occurrence: JP)
  Receive Date: 20211210
  Receipt Date: 20230117
  Transmission Date: 20230417
  Serious: Yes (Other)
  Sender: FDA-Public Use
  Company Number: JP-NOVARTISPH-NVSJ2021JP003303

PATIENT
  Age: 57 Year
  Sex: Female
  Weight: 49.3 kg

DRUGS (3)
  1. KYMRIAH [Suspect]
     Active Substance: TISAGENLECLEUCEL
     Indication: Diffuse large B-cell lymphoma
     Dosage: 4.6X10^8
     Route: 041
     Dates: start: 20200914, end: 20200914
  2. CYCLOPHOSPHAMIDE [Concomitant]
     Active Substance: CYCLOPHOSPHAMIDE
     Indication: Chemotherapy
     Dosage: 1140 MG/M2
     Route: 065
     Dates: start: 20200910
  3. FLUDARABINE [Concomitant]
     Active Substance: FLUDARABINE PHOSPHATE
     Indication: Chemotherapy
     Dosage: 90 MG/M2
     Route: 065
     Dates: start: 20200910

REACTIONS (10)
  - Platelet count decreased [Unknown]
  - Cytokine release syndrome [Recovered/Resolved]
  - Pyrexia [Unknown]
  - Hypoxia [Unknown]
  - Hypogammaglobulinaemia [Not Recovered/Not Resolved]
  - Neutropenia [Unknown]
  - Haemoglobin decreased [Unknown]
  - Diffuse large B-cell lymphoma recurrent [Unknown]
  - Diffuse large B-cell lymphoma [Unknown]
  - Malignant neoplasm progression [Unknown]

NARRATIVE: CASE EVENT DATE: 20200914
